FAERS Safety Report 18951357 (Version 2)
Quarter: 2021Q2

REPORT INFORMATION
  Report Type: Report from Study
  Country: None (occurrence: BR)
  Receive Date: 20210301
  Receipt Date: 20210621
  Transmission Date: 20210717
  Serious: Yes (Other)
  Sender: FDA-Public Use
  Company Number: BR-ABBVIE-21K-020-3786825-00

PATIENT
  Age: 56 Year
  Sex: Female
  Weight: 105 kg

DRUGS (3)
  1. PERIVASC [Concomitant]
     Indication: SWELLING
     Dosage: BEFORE RINVOQ
  2. UPADACITINIB [Suspect]
     Active Substance: UPADACITINIB
     Route: 048
     Dates: start: 202102
  3. UPADACITINIB [Suspect]
     Active Substance: UPADACITINIB
     Indication: RHEUMATOID ARTHRITIS
     Route: 048
     Dates: start: 20201128, end: 202102

REACTIONS (9)
  - Pain [Recovered/Resolved]
  - Angle closure glaucoma [Recovered/Resolved]
  - Rhinitis allergic [Unknown]
  - Pain [Recovering/Resolving]
  - Headache [Unknown]
  - Diabetes mellitus [Recovering/Resolving]
  - Cerebral venous sinus thrombosis [Unknown]
  - Arthralgia [Recovering/Resolving]
  - Iridectomy [Unknown]

NARRATIVE: CASE EVENT DATE: 20201222
